FAERS Safety Report 6368327-4 (Version None)
Quarter: 2009Q3

REPORT INFORMATION
  Report Type: 
  Country: None (occurrence: None)
  Receive Date: 20090922
  Receipt Date: 20090917
  Transmission Date: 20100115
  Serious: Yes (Hospitalization)
  Sender: FDA-Public Use
  Company Number: US-CUBIST-2009S1000402

PATIENT
  Age: 59 Year
  Sex: Male

DRUGS (2)
  1. CUBICIN [Suspect]
     Indication: DRUG USE FOR UNKNOWN INDICATION
     Dates: start: 20090913
  2. CUBICIN [Suspect]
     Dates: start: 20090913

REACTIONS (1)
  - RENAL TUBULAR ACIDOSIS [None]
